FAERS Safety Report 10162503 (Version 1)
Quarter: 2014Q2

REPORT INFORMATION
  Report Type: Spontaneous
  Country: DK (occurrence: None)
  Receive Date: 20140507
  Receipt Date: 20140507
  Transmission Date: 20141212
  Serious: Yes (Hospitalization, Congenital Anomaly)
  Sender: FDA-Public Use
  Company Number: DAV-AE-MTX-14-12

PATIENT
  Age: 29 Year
  Sex: Male

DRUGS (1)
  1. METHOTREXATE [Suspect]
     Indication: MATERNAL EXPOSURE TIMING UNSPECIFIED
     Dosage: MATERNAL

REACTIONS (11)
  - Acute abdomen [None]
  - Abdominal compartment syndrome [None]
  - Constipation [None]
  - Megacolon [None]
  - Vomiting [None]
  - Pyrexia [None]
  - Gastrointestinal malformation [None]
  - Respiratory failure [None]
  - Appendicitis [None]
  - Post procedural complication [None]
  - Maternal exposure before pregnancy [None]
